FAERS Safety Report 7562225-6 (Version None)
Quarter: 2011Q2

REPORT INFORMATION
  Report Type: 
  Country: None (occurrence: None)
  Receive Date: 20110525
  Receipt Date: 20110414
  Transmission Date: 20111010
  Serious: No
  Sender: FDA-Public Use
  Company Number: 326761

PATIENT
  Age: 60 Year
  Sex: Female
  Weight: 130.6 kg

DRUGS (6)
  1. CLONAPIN (CLONAZEPAM) [Concomitant]
  2. ASCORBIC ACID [Concomitant]
  3. LASIX [Concomitant]
  4. CRESTOR [Concomitant]
  5. VICTOZA [Suspect]
     Indication: TYPE 2 DIABETES MELLITUS
     Dosage: 0.6 MG, QD, SUBCUTANEOUS ; 1.2 MG, QD, SUBCUTANEOUS; 0.6 MG, BID, SUBCUTANEOUS
     Route: 058
     Dates: start: 20101001
  6. VITAMIN D [Concomitant]

REACTIONS (5)
  - ABDOMINAL DISCOMFORT [None]
  - BLOOD GLUCOSE INCREASED [None]
  - HERPES ZOSTER [None]
  - DYSGEUSIA [None]
  - VOMITING [None]
